FAERS Safety Report 10210514 (Version 1)
Quarter: 2014Q2

REPORT INFORMATION
  Report Type: Spontaneous
  Country: US (occurrence: US)
  Receive Date: 20140602
  Receipt Date: 20140602
  Transmission Date: 20141212
  Serious: No
  Sender: FDA-Public Use
  Company Number: US-PFIZER INC-2014148861

PATIENT
  Age: 58 Year
  Sex: Female

DRUGS (6)
  1. XELJANZ [Suspect]
     Indication: RHEUMATOID ARTHRITIS
     Dosage: 5MG (1 TABLET) TWICE DAILY
     Route: 048
     Dates: start: 201404, end: 20140524
  2. LYRICA [Concomitant]
     Dosage: UNK
  3. LISINOPRIL-HCTZ [Concomitant]
     Dosage: UNK
  4. PRAVACHOL [Concomitant]
     Dosage: UNK
  5. IRON [Concomitant]
     Dosage: UNK
  6. CALCIUM + D VITAMIN [Concomitant]
     Dosage: UNK

REACTIONS (2)
  - Blood uric acid increased [Unknown]
  - Headache [Unknown]
